FAERS Safety Report 9753946 (Version 2)
Quarter: 2014Q1

REPORT INFORMATION
  Report Type: Spontaneous
  Country: US (occurrence: US)
  Receive Date: 20131213
  Receipt Date: 20140131
  Transmission Date: 20141002
  Serious: No
  Sender: FDA-Public Use
  Company Number: US-GILEAD-2013-0089754

PATIENT
  Age: 64 Year
  Sex: Female

DRUGS (7)
  1. LETAIRIS [Suspect]
     Indication: PULMONARY HYPERTENSION
     Dosage: 5 MG, QD
     Route: 065
     Dates: start: 20090429
  2. SPIRONOLACTONE [Concomitant]
  3. VERAPAMIL [Concomitant]
  4. MELOLAZONE [Concomitant]
  5. PREDNISONE [Concomitant]
  6. COLCHICINE [Concomitant]
  7. ALLOPURINOL [Concomitant]

REACTIONS (1)
  - Tinea pedis [Unknown]
